FAERS Safety Report 9787963 (Version 3)
Quarter: 2014Q1

REPORT INFORMATION
  Report Type: Spontaneous
  Country: US (occurrence: US)
  Receive Date: 20131230
  Receipt Date: 20140307
  Transmission Date: 20141002
  Serious: Yes (Death, Hospitalization, Other)
  Sender: FDA-Public Use
  Company Number: US-ASTELLAS-2013US013442

PATIENT
  Age: 67 Year
  Sex: Female

DRUGS (30)
  1. PROGRAF [Suspect]
     Indication: RENAL TRANSPLANT
     Dosage: 0.5 MG, BID
     Route: 048
     Dates: end: 20131229
  2. PROGRAF [Suspect]
     Dosage: 1 MG, BID
     Route: 048
  3. PROGRAF [Suspect]
     Dosage: 0.5 MG, BID
     Route: 048
     Dates: start: 2008
  4. HYDRALAZINE [Suspect]
     Indication: BLOOD PRESSURE
     Dosage: UNK
     Route: 065
  5. DILTIAZEM [Suspect]
     Indication: PRODUCT USED FOR UNKNOWN INDICATION
     Dosage: UNK
     Route: 065
  6. SENSIPAR [Concomitant]
     Indication: PARATHYROID DISORDER
     Dosage: UNK
     Route: 065
  7. SIMVASTATIN [Concomitant]
     Indication: BLOOD CHOLESTEROL INCREASED
     Dosage: UNK
     Route: 065
  8. CLONIDINE [Concomitant]
     Indication: HYPERTENSION
     Dosage: BID, 0.1MG AT 8 AM AND 0.2 MG AT 8 PM
     Route: 065
  9. DIOVAN [Concomitant]
     Indication: HYPERTENSION
     Dosage: UNK
     Route: 065
  10. NORVASC [Concomitant]
     Indication: HYPERTENSION
     Dosage: UNK
     Route: 065
  11. COREG [Concomitant]
     Indication: HYPERTENSION
     Dosage: UNK
     Route: 065
  12. RAPAMUNE [Concomitant]
     Indication: RENAL TRANSPLANT
     Dosage: 1 MG, UID/QD
     Route: 065
  13. PREDNISONE [Concomitant]
     Indication: RENAL TRANSPLANT
     Dosage: 5 MG, UID/QD
  14. MULTIVITAMINS, PLAIN [Concomitant]
     Indication: SUPPLEMENTATION THERAPY
     Dosage: 1 TABLET, UID/QD
     Route: 065
  15. POLY-IRON FORTE [Concomitant]
     Indication: SUPPLEMENTATION THERAPY
     Dosage: 150 MG, BID
     Route: 065
  16. VITAMIN D                          /00107901/ [Concomitant]
     Indication: SUPPLEMENTATION THERAPY
     Dosage: 400 MG, UID/QD
  17. VITAMIN D                          /00107901/ [Concomitant]
     Dosage: 1000 MG, UID/QD, AT 8AM
  18. POTASSIUM CHLORIDE [Concomitant]
     Indication: SUPPLEMENTATION THERAPY
     Dosage: 20 MEQ, UID/QD
     Route: 065
  19. POTASSIUM CHLORIDE [Concomitant]
     Dosage: 10 MEQ, UID/QD
     Route: 065
  20. NEXIUM                             /01479302/ [Concomitant]
     Indication: PROPHYLAXIS AGAINST GASTROINTESTINAL ULCER
     Dosage: 40 MG, UID/QD
     Route: 065
  21. GLUCOTROL [Concomitant]
     Indication: DIABETES MELLITUS
     Dosage: 10 MG, BID
     Route: 065
  22. TOPROL [Concomitant]
     Indication: BLOOD PRESSURE
     Dosage: 100 MG, BID
  23. BABY ASPIRIN [Concomitant]
     Indication: ANTICOAGULANT THERAPY
     Dosage: 81 MG, 3XWEEKLY
     Route: 065
  24. TORSEMIDE [Concomitant]
     Indication: BLOOD PRESSURE
     Dosage: 10-20 MG, UID/QD
     Route: 065
  25. TORSEMIDE [Concomitant]
     Indication: FLUID RETENTION
  26. INSULIN [Concomitant]
     Indication: PRODUCT USED FOR UNKNOWN INDICATION
     Dosage: 6-16 U, BID
     Route: 065
  27. ARANESP [Concomitant]
     Indication: PRODUCT USED FOR UNKNOWN INDICATION
     Dosage: 1 SHOT, Q2W
     Route: 065
  28. ZINC [Concomitant]
     Indication: SUPPLEMENTATION THERAPY
     Dosage: 50 MG, UID/QD
     Route: 065
  29. PEPCID                             /00706001/ [Concomitant]
     Indication: PROPHYLAXIS AGAINST GASTROINTESTINAL ULCER
     Dosage: 10 MG, UID/QD
     Route: 065
  30. LACTULOSE [Concomitant]
     Indication: BOWEL MOVEMENT IRREGULARITY
     Dosage: 20 G, TITRATE FOR 2 BOWEL MOVEMENT PER DAY
     Route: 065

REACTIONS (18)
  - Wrong technique in drug usage process [Unknown]
  - Hepatic failure [Fatal]
  - Complications of transplanted kidney [Fatal]
  - Nervous system disorder [Unknown]
  - Hepatic encephalopathy [Unknown]
  - Cerebral small vessel ischaemic disease [Unknown]
  - Demyelination [Unknown]
  - Non-alcoholic steatohepatitis [Unknown]
  - Urinary tract infection [Unknown]
  - Sepsis [Unknown]
  - Urosepsis [Unknown]
  - Hallucination [Unknown]
  - Mental impairment [Unknown]
  - Lacunar infarction [Unknown]
  - Adverse drug reaction [Unknown]
  - Immunosuppressant drug level increased [Unknown]
  - Sinusitis [Unknown]
  - Ammonia increased [Recovered/Resolved]
